FAERS Safety Report 17346797 (Version 2)
Quarter: 2020Q3

REPORT INFORMATION
  Report Type: Spontaneous
  Country: US (occurrence: US)
  Receive Date: 20200130
  Receipt Date: 20200924
  Transmission Date: 20201102
  Serious: Yes (Death, Hospitalization, Other)
  Sender: FDA-Public Use
  Company Number: US-GILEAD-2020-0448760

PATIENT
  Age: 49 Year
  Sex: Male

DRUGS (20)
  1. ALBUTEROL [SALBUTAMOL SULFATE] [Concomitant]
     Active Substance: ALBUTEROL SULFATE
  2. COREG [Concomitant]
     Active Substance: CARVEDILOL
  3. METOPROLOL. [Concomitant]
     Active Substance: METOPROLOL
  4. TUMS [Concomitant]
     Active Substance: CALCIUM CARBONATE
  5. DIOVAN [Concomitant]
     Active Substance: VALSARTAN
  6. FOSRENOL [Concomitant]
     Active Substance: LANTHANUM CARBONATE
  7. ISOSORBIDE DINITRATE. [Concomitant]
     Active Substance: ISOSORBIDE DINITRATE
  8. PHOSLO [Concomitant]
     Active Substance: CALCIUM ACETATE
  9. RENVELA [Concomitant]
     Active Substance: SEVELAMER CARBONATE
  10. ASPIRIN [ACETYLSALICYLIC ACID] [Concomitant]
     Active Substance: ASPIRIN
  11. DIGOXIN. [Concomitant]
     Active Substance: DIGOXIN
  12. VIREAD [Suspect]
     Active Substance: TENOFOVIR DISOPROXIL FUMARATE
     Indication: HIV INFECTION
     Dosage: UNK
     Route: 048
     Dates: start: 2008, end: 20160808
  13. BISACODYL. [Concomitant]
     Active Substance: BISACODYL
  14. FOLIC ACID. [Concomitant]
     Active Substance: FOLIC ACID
  15. KALETRA [Concomitant]
     Active Substance: LOPINAVIR\RITONAVIR
  16. PANTOPRAZOLE [Concomitant]
     Active Substance: PANTOPRAZOLE
  17. OMEPRAZOLE. [Concomitant]
     Active Substance: OMEPRAZOLE
  18. EMTRIVA [Concomitant]
     Active Substance: EMTRICITABINE
  19. SENSIPAR [Concomitant]
     Active Substance: CINACALCET HYDROCHLORIDE
  20. PERCOCET [Concomitant]
     Active Substance: ACETAMINOPHEN\OXYCODONE HYDROCHLORIDE

REACTIONS (9)
  - Pneumonia [Fatal]
  - Pain [Unknown]
  - Anxiety [Unknown]
  - Economic problem [Unknown]
  - Respiratory failure [Fatal]
  - Anhedonia [Unknown]
  - Sepsis [Fatal]
  - Emotional distress [Unknown]
  - Acute kidney injury [Fatal]

NARRATIVE: CASE EVENT DATE: 201608
